FAERS Safety Report 12214225 (Version 1)
Quarter: 2016Q1

REPORT INFORMATION
  Report Type: Spontaneous
  Country: US (occurrence: None)
  Receive Date: 20160325
  Receipt Date: 20160325
  Transmission Date: 20160526
  Serious: Yes (Hospitalization)
  Sender: FDA-Public Use
  Company Number: None

PATIENT
  Age: 67 Year
  Sex: Female
  Weight: 66.5 kg

DRUGS (2)
  1. FUROSEMIDE, 40 MG [Suspect]
     Active Substance: FUROSEMIDE
     Indication: CARDIAC FAILURE CONGESTIVE
     Route: 048
     Dates: start: 20160309, end: 20160316
  2. SPIRONOLACTONE. [Concomitant]
     Active Substance: SPIRONOLACTONE

REACTIONS (6)
  - Factor VIII deficiency [None]
  - Swelling [None]
  - Skin mass [None]
  - Contusion [None]
  - Activated partial thromboplastin time prolonged [None]
  - Haematoma [None]

NARRATIVE: CASE EVENT DATE: 20160316
